FAERS Safety Report 12459056 (Version 2)
Quarter: 2016Q2

REPORT INFORMATION
  Report Type: Report from Study
  Country: US (occurrence: US)
  Receive Date: 20160613
  Receipt Date: 20160614
  Transmission Date: 20160815
  Serious: Yes (Hospitalization, Other)
  Sender: FDA-Public Use
  Company Number: US-GILEAD-2016-0218157

PATIENT
  Age: 69 Year
  Sex: Male
  Weight: 134.69 kg

DRUGS (3)
  1. AMBRISENTAN [Suspect]
     Active Substance: AMBRISENTAN
     Indication: CONNECTIVE TISSUE DISORDER
     Dosage: 10 MG, UNK
     Route: 065
     Dates: start: 20140312
  2. AMBRISENTAN [Suspect]
     Active Substance: AMBRISENTAN
     Indication: PULMONARY HYPERTENSION
  3. AMBRISENTAN [Suspect]
     Active Substance: AMBRISENTAN
     Indication: PULMONARY FIBROSIS

REACTIONS (6)
  - Confusional state [Unknown]
  - Fluid overload [Unknown]
  - Cardiomyopathy [Unknown]
  - Dyspnoea [Unknown]
  - Coronary artery disease [Unknown]
  - Urinary tract infection [Unknown]
